FAERS Safety Report 24935622 (Version 1)
Quarter: 2025Q1

REPORT INFORMATION
  Report Type: Spontaneous
  Country: JP (occurrence: JP)
  Receive Date: 20250206
  Receipt Date: 20250206
  Transmission Date: 20250408
  Serious: Yes (Other)
  Sender: EXELIXIS
  Company Number: JP-TAKEDA-2024TJP010884

PATIENT
  Age: 64 Year
  Sex: Male

DRUGS (2)
  1. CABOMETYX [Suspect]
     Active Substance: CABOZANTINIB S-MALATE
     Indication: Renal cancer
     Dosage: 60 MG, QD
     Route: 048
     Dates: start: 202307
  2. CABOMETYX [Suspect]
     Active Substance: CABOZANTINIB S-MALATE
     Route: 048

REACTIONS (1)
  - Blood creatinine increased [Not Recovered/Not Resolved]
